FAERS Safety Report 4948352-8 (Version None)
Quarter: 2006Q1

REPORT INFORMATION
  Report Type: 
  Country: None (occurrence: None)
  Receive Date: 20060320
  Receipt Date: 20060308
  Transmission Date: 20060701
  Serious: Yes (Other)
  Sender: FDA-Public Use
  Company Number: US-BRISTOL-MYERS SQUIBB COMPANY-13319561

PATIENT
  Age: 44 Year
  Sex: Female

DRUGS (6)
  1. STAVUDINE [Suspect]
     Indication: HIV INFECTION
  2. LAMIVUDINE + ZIDOVUDINE [Suspect]
     Indication: HIV INFECTION
     Dosage: DOSAGE FORM-CAPSULES: RITONAVIR 400 MG + LOPINAVIR 100 MG
  3. INDINIVIR SULFATE [Suspect]
     Indication: HIV INFECTION
  4. NELFINAVIR [Suspect]
     Indication: HIV INFECTION
  5. CLONAZEPAM [Concomitant]
  6. PROPYLTHIOURACIL [Concomitant]

REACTIONS (2)
  - ATRIOVENTRICULAR BLOCK COMPLETE [None]
  - ELECTROCARDIOGRAM QT PROLONGED [None]
